FAERS Safety Report 15879770 (Version 3)
Quarter: 2019Q1

REPORT INFORMATION
  Report Type: Spontaneous
  Country: US (occurrence: US)
  Receive Date: 20190128
  Receipt Date: 20190211
  Transmission Date: 20190417
  Serious: Yes (Other)
  Sender: FDA-Public Use
  Company Number: US-HORIZON-VIM-0035-2019

PATIENT
  Sex: Female

DRUGS (1)
  1. VIMOVO [Suspect]
     Active Substance: ESOMEPRAZOLE MAGNESIUM\NAPROXEN
     Indication: PRODUCT USED FOR UNKNOWN INDICATION
     Dosage: 1 TAB BID
     Route: 048

REACTIONS (5)
  - Knee operation [Unknown]
  - Therapy cessation [Not Recovered/Not Resolved]
  - Pain [Not Recovered/Not Resolved]
  - Product supply issue [Not Recovered/Not Resolved]
  - Arthralgia [Not Recovered/Not Resolved]
